FAERS Safety Report 11507286 (Version 1)
Quarter: 2015Q3

REPORT INFORMATION
  Report Type: Spontaneous
  Country: US (occurrence: US)
  Receive Date: 20150915
  Receipt Date: 20150915
  Transmission Date: 20151125
  Serious: No
  Sender: FDA-Public Use
  Company Number: US-BANPHARM-20153972

PATIENT
  Age: 70 Year
  Sex: Female
  Weight: 54.43 kg

DRUGS (4)
  1. MULTIVITAMIN [Concomitant]
     Active Substance: VITAMINS
     Dosage: QD,
  2. ZYRTEC [Suspect]
     Active Substance: CETIRIZINE HYDROCHLORIDE
     Dosage: 1 DF, QD,
     Route: 048
     Dates: end: 20150603
  3. HIGH BLOOD PRESSURE MEDICATION [Concomitant]
     Active Substance: UNSPECIFIED INGREDIENT
  4. TOPAMAX [Concomitant]
     Active Substance: TOPIRAMATE
     Dosage: QD,

REACTIONS (1)
  - Abdominal distension [Recovering/Resolving]
